FAERS Safety Report 8815259 (Version 1)
Quarter: 2012Q4

REPORT INFORMATION
  Report Type: 
  Country: GB (occurrence: GB)
  Receive Date: 20120928
  Receipt Date: 20120928
  Transmission Date: 20130627
  Serious: Yes (Hospitalization)
  Sender: FDA-Public Use
  Company Number: GB-SANOFI-AVENTIS-2012SA068459

PATIENT
  Age: 51 Year

DRUGS (4)
  1. RILUZOLE [Suspect]
     Indication: GASTROSTOMY
     Route: 065
  2. GLYCOPYRRONIUM [Suspect]
     Indication: GASTROSTOMY
     Dosage: 200mcg/ml injection Dose:200 microgram(s)/millilitre
     Route: 065
  3. ATROPINE [Suspect]
     Indication: GASTROSTOMY
     Route: 065
  4. CLONIDINE [Suspect]
     Indication: GASTROSTOMY
     Route: 065

REACTIONS (3)
  - Feeding tube complication [Not Recovered/Not Resolved]
  - Excessive granulation tissue [Not Recovered/Not Resolved]
  - Application site reaction [None]
